FAERS Safety Report 8202764-8 (Version None)
Quarter: 2012Q1

REPORT INFORMATION
  Report Type: 
  Country: None (occurrence: None)
  Receive Date: 20120312
  Receipt Date: 20120312
  Transmission Date: 20120608
  Serious: Yes (Other)
  Sender: FDA-Public Use
  Company Number: None

PATIENT
  Sex: Female
  Weight: 141.97 kg

DRUGS (2)
  1. DIOVAN [Suspect]
     Indication: HYPERTENSION
     Dosage: 80 MG
     Route: 048
     Dates: start: 20081001, end: 20120207
  2. DIOVAN [Concomitant]
     Dosage: 80 MG
     Route: 048
     Dates: start: 20081001, end: 20120207

REACTIONS (5)
  - SWOLLEN TONGUE [None]
  - LIP SWELLING [None]
  - ANGIOEDEMA [None]
  - MYALGIA [None]
  - DYSPNOEA [None]
